FAERS Safety Report 8579595-2 (Version None)
Quarter: 2012Q3

REPORT INFORMATION
  Report Type: 
  Country: None (occurrence: None)
  Receive Date: 20120808
  Receipt Date: 20120801
  Transmission Date: 20120928
  Serious: Yes (Life-Threatening, Hospitalization)
  Sender: FDA-Public Use
  Company Number: FR-BRISTOL-MYERS SQUIBB COMPANY-16832321

PATIENT
  Age: 84 Year
  Sex: Male

DRUGS (8)
  1. COUMADIN [Suspect]
     Indication: THROMBOSIS PROPHYLAXIS
     Route: 048
     Dates: start: 20120601
  2. CALCIPARINE [Suspect]
     Indication: THROMBOSIS PROPHYLAXIS
     Route: 058
     Dates: start: 20120601
  3. ATORVASTATIN [Concomitant]
  4. SYMBICORT [Concomitant]
  5. BRICANYL [Concomitant]
  6. ATROVENT [Concomitant]
  7. FORTIMEL [Concomitant]
  8. AMLODIPINE BESYLATE [Concomitant]

REACTIONS (3)
  - INTRA-ABDOMINAL HAEMATOMA [None]
  - INTERNATIONAL NORMALISED RATIO INCREASED [None]
  - ANAEMIA [None]
